FAERS Safety Report 21459469 (Version 1)
Quarter: 2022Q4

REPORT INFORMATION
  Report Type: Spontaneous
  Country: US (occurrence: None)
  Receive Date: 20221014
  Receipt Date: 20221014
  Transmission Date: 20230112
  Serious: Yes (Hospitalization, Other)
  Sender: FDA-Public Use
  Company Number: None

PATIENT
  Age: 22 Year
  Sex: Female
  Weight: 112.5 kg

DRUGS (1)
  1. LUMASON [Suspect]
     Active Substance: SULFUR HEXAFLUORIDE
     Route: 042

REACTIONS (7)
  - Wheezing [None]
  - Flushing [None]
  - Tremor [None]
  - Throat tightness [None]
  - Respiratory distress [None]
  - Altered state of consciousness [None]
  - Infusion related reaction [None]

NARRATIVE: CASE EVENT DATE: 20221013
